FAERS Safety Report 5107753-8 (Version None)
Quarter: 2006Q3

REPORT INFORMATION
  Report Type: 
  Country: None (occurrence: None)
  Receive Date: 20060914
  Receipt Date: 20060904
  Transmission Date: 20061208
  Serious: Yes (Disabling, Other)
  Sender: FDA-Public Use
  Company Number: 2006087841

PATIENT
  Age: 19 Year
  Sex: Male

DRUGS (3)
  1. NEURONTIN [Suspect]
     Indication: NEURALGIA
     Dosage: 1800 MG
     Dates: start: 20040101
  2. ENDONE (OXYCODONE HYDROCHLORIDE) [Concomitant]
  3. CODEINE SUL TAB [Concomitant]

REACTIONS (9)
  - ASTHENIA [None]
  - DIZZINESS [None]
  - DRUG TOXICITY [None]
  - MUSCULAR WEAKNESS [None]
  - NAUSEA [None]
  - PANIC ATTACK [None]
  - VERTIGO [None]
  - VISION BLURRED [None]
  - VOMITING [None]
